FAERS Safety Report 4949068-4 (Version None)
Quarter: 2006Q1

REPORT INFORMATION
  Report Type: 
  Country: None (occurrence: None)
  Receive Date: 20060321
  Receipt Date: 20051206
  Transmission Date: 20060701
  Serious: Yes (Hospitalization)
  Sender: FDA-Public Use
  Company Number: PHRM2005FR03192

PATIENT
  Age: 36 Year
  Sex: Female

DRUGS (1)
  1. VOLTARENE LP [Suspect]
     Dosage: 75 MG, BID
     Route: 048
     Dates: start: 20050515, end: 20051020

REACTIONS (6)
  - 5'NUCLEOTIDASE INCREASED [None]
  - ANTI-HBC ANTIBODY POSITIVE [None]
  - ASPARTATE AMINOTRANSFERASE INCREASED [None]
  - BLOOD ALKALINE PHOSPHATASE INCREASED [None]
  - GENERAL PHYSICAL HEALTH DETERIORATION [None]
  - HEPATITIS A [None]
